FAERS Safety Report 8809594 (Version 1)
Quarter: 2012Q4

REPORT INFORMATION
  Report Type: 
  Country: US (occurrence: US)
  Receive Date: 20120926
  Receipt Date: 20120926
  Transmission Date: 20130627
  Serious: Yes (Death, Other)
  Sender: FDA-Public Use
  Company Number: US-ROCHE-1126633

PATIENT
  Sex: Male

DRUGS (4)
  1. AVASTIN [Suspect]
     Indication: RENAL CANCER
     Route: 065
     Dates: start: 20050824
  2. AVASTIN [Suspect]
     Indication: LUNG NEOPLASM MALIGNANT
  3. FLUOROURACIL [Suspect]
     Indication: RENAL CANCER
     Route: 065
     Dates: start: 20050824
  4. FLUOROURACIL [Suspect]
     Indication: LUNG NEOPLASM MALIGNANT

REACTIONS (3)
  - Death [Fatal]
  - Disease progression [Unknown]
  - Drug ineffective [Unknown]
